FAERS Safety Report 10268477 (Version 2)
Quarter: 2016Q1

REPORT INFORMATION
  Report Type: Report from Study
  Country: CA (occurrence: CA)
  Receive Date: 20140630
  Receipt Date: 20160211
  Transmission Date: 20160525
  Serious: Yes (Other)
  Sender: FDA-Public Use
  Company Number: CA-BAYER-2014-093330

PATIENT
  Age: 69 Year
  Sex: Female

DRUGS (8)
  1. WARFARIN [Concomitant]
     Active Substance: WARFARIN
  2. NEXIUM [Suspect]
     Active Substance: ESOMEPRAZOLE MAGNESIUM
     Indication: GASTROOESOPHAGEAL REFLUX DISEASE
  3. METOPROLOL. [Concomitant]
     Active Substance: METOPROLOL
  4. ADEMPAS [Suspect]
     Active Substance: RIOCIGUAT
     Indication: PULMONARY HYPERTENSION
     Dosage: 2.5 MG, TID
     Route: 048
     Dates: start: 20141114
  5. REVATIO [Concomitant]
     Active Substance: SILDENAFIL CITRATE
  6. TRACLEER [Concomitant]
     Active Substance: BOSENTAN
  7. RENEDIL [Concomitant]
     Active Substance: FELODIPINE
  8. TECTA [Concomitant]
     Active Substance: PANTOPRAZOLE MAGNESIUM

REACTIONS (7)
  - Urticaria [None]
  - Gastrointestinal motility disorder [Unknown]
  - Hiatus hernia [None]
  - Diarrhoea [Unknown]
  - Gastroenteritis norovirus [Unknown]
  - Oesophageal ulcer [None]
  - Gastrooesophageal reflux disease [None]

NARRATIVE: CASE EVENT DATE: 2016
